FAERS Safety Report 12202010 (Version 1)
Quarter: 2016Q1

REPORT INFORMATION
  Report Type: Spontaneous
  Country: US (occurrence: US)
  Receive Date: 20160322
  Receipt Date: 20160322
  Transmission Date: 20160526
  Serious: Yes (Hospitalization, Other)
  Sender: FDA-Public Use
  Company Number: US-PFIZER INC-2016162801

PATIENT
  Age: 35 Year
  Sex: Male
  Weight: 92.99 kg

DRUGS (9)
  1. DILANTIN [Interacting]
     Active Substance: PHENYTOIN
     Dosage: 400MG; 200MG IN THE AM, 200MG IN THE PM, THREE DAYS A WEEK ABD 300MG DAILY IN MONDAY AND FRIDAY
  2. DILANTIN [Suspect]
     Active Substance: PHENYTOIN
     Indication: SEIZURE
     Dosage: 100 MG, 3X/DAY
     Dates: start: 1989, end: 2001
  3. LYRICA [Concomitant]
     Active Substance: PREGABALIN
     Indication: SEIZURE
     Dosage: ONE 50MG TABLET IN THE MORNING
     Route: 048
  4. DILANTIN [Interacting]
     Active Substance: PHENYTOIN
     Dosage: 230 MG, 2X/DAY
     Dates: start: 2001
  5. COUMADIN [Interacting]
     Active Substance: WARFARIN SODIUM
     Indication: THROMBOSIS
     Dosage: 70 MG, WEEKLY
  6. LYRICA [Concomitant]
     Active Substance: PREGABALIN
     Indication: NEUROPATHY PERIPHERAL
  7. VALSARTAN. [Concomitant]
     Active Substance: VALSARTAN
     Indication: BLOOD PRESSURE ABNORMAL
     Dosage: 160 MG, 1X/DAY
  8. COUMADIN [Interacting]
     Active Substance: WARFARIN SODIUM
     Dosage: 45-48MG A WEEK
  9. VITAMIN D3 [Concomitant]
     Active Substance: CHOLECALCIFEROL
     Indication: BLOOD CALCIUM DECREASED
     Dosage: 1000 UNITS ONCE A DAY
     Route: 048

REACTIONS (16)
  - Drug ineffective [Unknown]
  - Hand fracture [Unknown]
  - International normalised ratio increased [Not Recovered/Not Resolved]
  - Paraesthesia [Unknown]
  - Cerebral thrombosis [Unknown]
  - Antiphospholipid syndrome [Unknown]
  - Transient ischaemic attack [Unknown]
  - Dizziness [Unknown]
  - Hypertension [Unknown]
  - Toxicity to various agents [Unknown]
  - Thrombosis [Unknown]
  - Drug interaction [Unknown]
  - Blood calcium decreased [Unknown]
  - Protein S deficiency [Unknown]
  - Cerebrovascular accident [Unknown]
  - Upper limb fracture [Unknown]

NARRATIVE: CASE EVENT DATE: 199112
